FAERS Safety Report 6465923-0 (Version None)
Quarter: 2009Q4

REPORT INFORMATION
  Report Type: 
  Country: None (occurrence: None)
  Receive Date: 20091202
  Receipt Date: 20091120
  Transmission Date: 20100525
  Serious: Yes (Other)
  Sender: FDA-Public Use
  Company Number: US-BIOGENIDEC-2009BI038412

PATIENT
  Age: 54 Year
  Sex: Male

DRUGS (1)
  1. TYSABRI [Suspect]
     Indication: MULTIPLE SCLEROSIS
     Route: 042
     Dates: start: 20090217

REACTIONS (6)
  - BASAL CELL CARCINOMA [None]
  - FALL [None]
  - HYPERTENSION [None]
  - MUSCULAR WEAKNESS [None]
  - NASOPHARYNGITIS [None]
  - PYREXIA [None]
